FAERS Safety Report 11367601 (Version 1)
Quarter: 2015Q3

REPORT INFORMATION
  Report Type: Spontaneous
  Country: US (occurrence: US)
  Receive Date: 20150811
  Receipt Date: 20150811
  Transmission Date: 20151125
  Serious: No
  Sender: FDA-Public Use
  Company Number: US-ELI_LILLY_AND_COMPANY-US201205003211

PATIENT

DRUGS (2)
  1. AXIRON [Suspect]
     Active Substance: TESTOSTERONE
     Dosage: UNK, 2 APPLICATIONS UNDER EACH ARM DAILY
     Dates: start: 201203
  2. AXIRON [Suspect]
     Active Substance: TESTOSTERONE

REACTIONS (2)
  - Incorrect product storage [Unknown]
  - Blood testosterone decreased [Unknown]
